FAERS Safety Report 5713279-0 (Version None)
Quarter: 2008Q2

REPORT INFORMATION
  Report Type: 
  Country: None (occurrence: None)
  Receive Date: 20080422
  Receipt Date: 20080415
  Transmission Date: 20081010
  Serious: Yes (Disabling)
  Sender: FDA-Public Use
  Company Number: GB-ASTRAZENECA-2001AP00873

PATIENT
  Age: 25682 Day
  Sex: Male
  Weight: 82.5 kg

DRUGS (4)
  1. DIPRIVAN [Suspect]
     Indication: INDUCTION OF ANAESTHESIA
     Dosage: 1 DOSE GIVEN
     Route: 042
     Dates: start: 20000525, end: 20000525
  2. DIPRIVAN [Suspect]
     Indication: MAINTENANCE OF ANAESTHESIA
     Dosage: 1 DOSE GIVEN
     Route: 042
     Dates: start: 20000525, end: 20000525
  3. FENTANYL CITRATE [Suspect]
     Indication: ANAESTHESIA
     Dosage: 1 DOSE GIVEN
     Route: 042
     Dates: start: 20000525, end: 20000525
  4. ATENOLOL [Concomitant]
     Indication: HYPERTENSION
     Dosage: 1 DOSE GIVEN
     Route: 048

REACTIONS (2)
  - AGEUSIA [None]
  - ANOSMIA [None]
